FAERS Safety Report 9690056 (Version 1)
Quarter: 2013Q4

REPORT INFORMATION
  Report Type: Spontaneous
  Country: US (occurrence: US)
  Receive Date: 20131115
  Receipt Date: 20131115
  Transmission Date: 20140711
  Serious: Yes (Other)
  Sender: FDA-Public Use
  Company Number: US-SA-2013SA117638

PATIENT
  Age: 66 Year
  Sex: Female

DRUGS (2)
  1. LANTUS SOLOSTAR [Suspect]
     Dosage: DOSE:35 UNIT(S)
     Route: 051
     Dates: start: 2011
  2. SOLOSTAR [Concomitant]
     Dates: start: 2011

REACTIONS (3)
  - Cataract [Unknown]
  - Visual impairment [Unknown]
  - Scar [Unknown]
